FAERS Safety Report 21637416 (Version 1)
Quarter: 2022Q4

REPORT INFORMATION
  Report Type: Spontaneous
  Country: US (occurrence: US)
  Receive Date: 20221124
  Receipt Date: 20221124
  Transmission Date: 20230113
  Serious: Yes (Other)
  Sender: FDA-Public Use
  Company Number: US-HETERO-HET2022US02957

PATIENT
  Age: 35 Year
  Sex: Male

DRUGS (1)
  1. LEVETIRACETAM [Suspect]
     Active Substance: LEVETIRACETAM
     Indication: Generalised tonic-clonic seizure
     Dosage: 500 MG, BID
     Route: 048

REACTIONS (3)
  - Rhabdomyolysis [Recovering/Resolving]
  - Acute kidney injury [Recovering/Resolving]
  - Treatment noncompliance [Unknown]
